FAERS Safety Report 24351273 (Version 1)
Quarter: 2024Q3

REPORT INFORMATION
  Report Type: Report from Study
  Country: PE (occurrence: PE)
  Receive Date: 20240923
  Receipt Date: 20240923
  Transmission Date: 20241017
  Serious: No
  Sender: ROCHE
  Company Number: PE-ROCHE-3549817

PATIENT
  Age: 36 Year
  Sex: Female

DRUGS (12)
  1. HERCEPTIN [Suspect]
     Active Substance: TRASTUZUMAB
     Indication: Breast cancer
     Route: 041
     Dates: start: 20240119
  2. HERCEPTIN [Suspect]
     Active Substance: TRASTUZUMAB
     Dosage: FIRST INFUSION IN 90 MIN. SECOND INFUSION AND BEYOND IN 30 MIN
     Route: 041
  3. PERJETA [Suspect]
     Active Substance: PERTUZUMAB
     Indication: Breast cancer
     Dosage: FIRST INFUSION IN 90 MIN. SECOND INFUSION AND BEYOND IN 30 MIN
     Route: 042
     Dates: start: 20240119
  4. DOCETAXEL [Concomitant]
     Active Substance: DOCETAXEL\DOCETAXEL ANHYDROUS
     Indication: Breast cancer
  5. CARBOPLATIN [Concomitant]
     Active Substance: CARBOPLATIN
     Indication: Breast cancer
  6. SODIUM CHLORIDE [Concomitant]
     Active Substance: SODIUM CHLORIDE
     Dosage: FREQUENCY WAS NOT REPORTED
     Route: 042
  7. RANITIDINE [Concomitant]
     Active Substance: RANITIDINE
     Dosage: FREQUENCY WAS NOT REPORTED. ADMINISTRATION TIME: 10 MIN
     Route: 042
  8. CHLORPHENIRAMINE MALEATE [Concomitant]
     Active Substance: CHLORPHENIRAMINE MALEATE
     Dosage: FREQUENCY WAS NOT REPORTED. ADMINISTRATION TIME: 10 MIN
     Route: 042
  9. ACETAMINOPHEN [Concomitant]
     Active Substance: ACETAMINOPHEN
     Dosage: FREQUENCY WAS NOT REPORTED.
     Route: 048
  10. DEXAMETHASONE [Concomitant]
     Active Substance: DEXAMETHASONE
     Dosage: FREQUENCY WAS NOT REPORTED. ADMINISTRATION TIME: 15 MIN
     Route: 042
  11. ONDANSETRON [Concomitant]
     Active Substance: ONDANSETRON
     Dosage: FREQUENCY WAS NOT REPORTED. ADMINISTRATION TIME: 10 MIN
     Route: 042
  12. APREPITANT [Concomitant]
     Active Substance: APREPITANT
     Dosage: FREQUENCY WAS NOT REPORTED.

REACTIONS (1)
  - Weight decreased [Unknown]
